FAERS Safety Report 5455017-5 (Version None)
Quarter: 2007Q3

REPORT INFORMATION
  Report Type: 
  Country: None (occurrence: None)
  Receive Date: 20070913
  Receipt Date: 20070905
  Transmission Date: 20080115
  Serious: Yes (Other)
  Sender: FDA-Public Use
  Company Number: TPA2007A01867

PATIENT
  Age: 70 Year
  Sex: Male

DRUGS (13)
  1. ACTOS [Suspect]
     Indication: TYPE 2 DIABETES MELLITUS
     Dosage: 30 MG, 1 IN 1 D, PER ORAL
     Route: 048
     Dates: start: 20070602, end: 20070822
  2. ACTOS [Suspect]
     Indication: TYPE 2 DIABETES MELLITUS
     Dosage: 30 MG, 1 IN 1 D, PER ORAL
     Route: 048
     Dates: start: 20070828
  3. SAXAGLIPTIN (DRUG USE IN DIABETES) [Suspect]
     Indication: TYPE 2 DIABETES MELLITUS
     Dosage: 5 MG, 1 IN 1 D, PER ORAL
     Route: 048
     Dates: start: 20061206, end: 20070822
  4. SAXAGLIPTIN (DRUG USE IN DIABETES) [Suspect]
     Indication: TYPE 2 DIABETES MELLITUS
     Dosage: 5 MG, 1 IN 1 D, PER ORAL
     Route: 048
     Dates: start: 20070828
  5. ROSIGLITAZONE [Suspect]
     Indication: TYPE 2 DIABETES MELLITUS
     Dosage: 4 MG, 1 IN 1 D PER ORAL
     Route: 048
     Dates: start: 20060125, end: 20070601
  6. LEVODOPA (LEVODOPA) [Concomitant]
  7. ATORVASTATIN (ATORVASTATIN CALCIUM) [Concomitant]
  8. LOSARTAN POTASSIUM [Concomitant]
  9. FINASTERIDE [Concomitant]
  10. DICLOFENAC (DICLOFENAC) [Concomitant]
  11. ALPRAZOLAM [Concomitant]
  12. LUTEINA FORTE R (XANTOFYL) [Concomitant]
  13. BENSERAZIDE (BENSERAZIDE) [Concomitant]

REACTIONS (2)
  - RENAL NEOPLASM [None]
  - TESTICULAR PAIN [None]
